FAERS Safety Report 18975586 (Version 1)
Quarter: 2021Q1

REPORT INFORMATION
  Report Type: Other
  Country: JP (occurrence: JP)
  Receive Date: 20210305
  Receipt Date: 20210305
  Transmission Date: 20210420
  Serious: Yes (Death)
  Sender: FDA-Public Use
  Company Number: JP-ROCHE-2776662

PATIENT

DRUGS (8)
  1. CYCLOSPORINE. [Suspect]
     Active Substance: CYCLOSPORINE
     Indication: CORD BLOOD TRANSPLANT THERAPY
  2. TACROLIMUS. [Suspect]
     Active Substance: TACROLIMUS
     Indication: CORD BLOOD TRANSPLANT THERAPY
  3. MYCOPHENOLATE MOFETIL. [Suspect]
     Active Substance: MYCOPHENOLATE MOFETIL
     Indication: BONE MARROW TRANSPLANT
     Route: 065
  4. TACROLIMUS. [Suspect]
     Active Substance: TACROLIMUS
     Indication: BONE MARROW TRANSPLANT
     Route: 065
  5. METHOTREXATE. [Suspect]
     Active Substance: METHOTREXATE
     Indication: CORD BLOOD TRANSPLANT THERAPY
  6. METHOTREXATE. [Suspect]
     Active Substance: METHOTREXATE
     Indication: BONE MARROW TRANSPLANT
     Route: 065
  7. MYCOPHENOLATE MOFETIL. [Suspect]
     Active Substance: MYCOPHENOLATE MOFETIL
     Indication: CORD BLOOD TRANSPLANT THERAPY
  8. CYCLOSPORINE. [Suspect]
     Active Substance: CYCLOSPORINE
     Indication: BONE MARROW TRANSPLANT
     Route: 065

REACTIONS (15)
  - Pneumonia cytomegaloviral [Fatal]
  - Cytomegalovirus colitis [Fatal]
  - Febrile neutropenia [Fatal]
  - Cytomegalovirus infection [Fatal]
  - Candida infection [Fatal]
  - HIV infection [Fatal]
  - Hepatitis B [Fatal]
  - Varicella zoster virus infection [Fatal]
  - Meningoencephalitis herpetic [Fatal]
  - Hepatitis C [Fatal]
  - Adenoviral haemorrhagic cystitis [Fatal]
  - Aspergillus infection [Fatal]
  - Bacteraemia [Fatal]
  - Pneumonia [Fatal]
  - Human T-cell lymphotropic virus infection [Fatal]
